FAERS Safety Report 9606933 (Version 2)
Quarter: 2013Q4

REPORT INFORMATION
  Report Type: Spontaneous
  Country: US (occurrence: US)
  Receive Date: 20131008
  Receipt Date: 20131023
  Transmission Date: 20140711
  Serious: Yes (Other)
  Sender: FDA-Public Use
  Company Number: US-RB-059170-13

PATIENT
  Sex: Female

DRUGS (1)
  1. MUCINEX FULL FORCE NASAL SPRAY [Suspect]
     Indication: NASAL CONGESTION
     Dosage: EVERYDAY USE
     Route: 045

REACTIONS (1)
  - Epistaxis [Recovered/Resolved]
